FAERS Safety Report 7537695-X (Version None)
Quarter: 2011Q2

REPORT INFORMATION
  Report Type: 
  Country: None (occurrence: None)
  Receive Date: 20110609
  Receipt Date: 20070828
  Transmission Date: 20111010
  Serious: Yes (Death, Other)
  Sender: FDA-Public Use
  Company Number: PHMT2007CA01378

PATIENT
  Sex: Male

DRUGS (1)
  1. CLOZAPINE [Suspect]
     Dates: start: 20020305

REACTIONS (3)
  - METASTASES TO LIVER [None]
  - METASTASES TO LUNG [None]
  - LUNG NEOPLASM MALIGNANT [None]
